FAERS Safety Report 10776987 (Version 3)
Quarter: 2015Q1

REPORT INFORMATION
  Report Type: Report from Study
  Country: FR (occurrence: FR)
  Receive Date: 20150209
  Receipt Date: 20150330
  Transmission Date: 20150721
  Serious: No
  Sender: FDA-Public Use
  Company Number: PHHO2015FR001843

PATIENT
  Age: 9 Year
  Sex: Male

DRUGS (3)
  1. VINBLASTINE SULFATE. [Suspect]
     Active Substance: VINBLASTINE SULFATE
     Indication: GLIOMA
     Dosage: 2.7 MG, QW
     Route: 042
     Dates: start: 20141219
  2. AMN107 [Suspect]
     Active Substance: NILOTINIB
     Indication: GLIOMA
     Dosage: 350 MG, BID
     Route: 048
     Dates: start: 20141220
  3. BACTRIM [Concomitant]
     Active Substance: SULFAMETHOXAZOLE\TRIMETHOPRIM
     Indication: ASTROCYTOMA
     Dosage: 25 MG/KG, TIW
     Route: 065
     Dates: start: 20141222

REACTIONS (1)
  - Tumour haemorrhage [Not Recovered/Not Resolved]

NARRATIVE: CASE EVENT DATE: 20150116
